FAERS Safety Report 9752155 (Version 2)
Quarter: 2013Q4

REPORT INFORMATION
  Report Type: Spontaneous
  Country: FR (occurrence: FR)
  Receive Date: 20131213
  Receipt Date: 20131216
  Transmission Date: 20140711
  Serious: Yes (Life-Threatening)
  Sender: FDA-Public Use
  Company Number: FR-JNJFOC-20131207452

PATIENT
  Age: 55 Year
  Sex: Female
  Weight: 59 kg

DRUGS (15)
  1. REMICADE [Suspect]
     Indication: CROHN^S DISEASE
     Route: 042
  2. REMICADE [Suspect]
     Indication: CROHN^S DISEASE
     Dosage: 34TH INFUSION
     Route: 042
     Dates: start: 20130927
  3. REMICADE [Suspect]
     Indication: CROHN^S DISEASE
     Dosage: 33RD INFUSION
     Route: 042
     Dates: start: 20130808
  4. REMICADE [Suspect]
     Indication: CROHN^S DISEASE
     Dosage: 32ND INFUSION
     Route: 042
     Dates: start: 20130614
  5. METHOTREXATE [Suspect]
     Indication: PRODUCT USED FOR UNKNOWN INDICATION
     Route: 065
  6. SOLU-MEDROL [Suspect]
     Indication: PREMEDICATION
     Route: 042
     Dates: start: 20130614
  7. DIPROSONE [Concomitant]
     Route: 065
  8. TENSTATEN [Concomitant]
     Route: 048
  9. ADROVANCE [Concomitant]
     Route: 048
  10. KARDEGIC [Concomitant]
     Route: 048
  11. SPECIAFOLDINE [Concomitant]
     Route: 048
  12. SIMVASTATINE [Concomitant]
     Route: 048
  13. SERTRALINE [Concomitant]
     Dosage: 50 UNITS UNSPECIFIED
     Route: 048
  14. LEVOTHYROX [Concomitant]
     Route: 048
  15. EUPANTOL [Concomitant]
     Route: 065

REACTIONS (2)
  - Tracheobronchitis [Recovered/Resolved]
  - Sinusitis [Recovered/Resolved]
